FAERS Safety Report 11813080 (Version 3)
Quarter: 2020Q4

REPORT INFORMATION
  Report Type: Other
  Country: FR (occurrence: FR)
  Receive Date: 20151209
  Receipt Date: 20201008
  Transmission Date: 20210113
  Serious: Yes (Death, Life-Threatening, Hospitalization)
  Sender: FDA-Public Use
  Company Number: FR-ROCHE-1673847

PATIENT
  Age: 18 Year
  Sex: Female

DRUGS (21)
  1. CLOZAPINE. [Suspect]
     Active Substance: CLOZAPINE
     Indication: PSYCHIATRIC SYMPTOM
     Route: 048
     Dates: start: 201305
  2. ATARAX [Concomitant]
     Active Substance: HYDROXYZINE HYDROCHLORIDE
  3. NORDAZEPAM [Concomitant]
     Active Substance: NORDAZEPAM
     Dosage: UNK UNK,UNK
     Route: 065
  4. VALIUM [Suspect]
     Active Substance: DIAZEPAM
     Indication: PSYCHIATRIC SYMPTOM
     Dosage: 40 MG
     Route: 048
  5. PHLOROGLUCINOL [Suspect]
     Active Substance: PHLOROGLUCINOL
     Indication: PRODUCT USED FOR UNKNOWN INDICATION
     Dosage: UNK UNK,PRN
     Route: 065
  6. FORLAX [Suspect]
     Active Substance: POLYETHYLENE GLYCOL 4000
     Indication: PRODUCT USED FOR UNKNOWN INDICATION
     Route: 048
  7. OXYBUTYNIN HYDROCHLORIDE [Suspect]
     Active Substance: OXYBUTYNIN CHLORIDE
     Route: 065
  8. DIAZEPAM. [Suspect]
     Active Substance: DIAZEPAM
     Dosage: 10 MG TID
     Route: 065
  9. HYDROXYZINE [Suspect]
     Active Substance: HYDROXYZINE HYDROCHLORIDE
     Indication: PRODUCT USED FOR UNKNOWN INDICATION
     Route: 048
  10. DOLIPRANE [Suspect]
     Active Substance: ACETAMINOPHEN
     Indication: PSYCHIATRIC SYMPTOM
     Route: 048
  11. OXYBUTYNIN HYDROCHLORIDE [Suspect]
     Active Substance: OXYBUTYNIN CHLORIDE
     Route: 065
  12. DIAZEPAM. [Suspect]
     Active Substance: DIAZEPAM
     Dosage: 40 MG
     Route: 048
  13. DOLIPRANE [Suspect]
     Active Substance: ACETAMINOPHEN
     Route: 048
  14. FORLAX [Suspect]
     Active Substance: POLYETHYLENE GLYCOL 4000
     Route: 048
  15. OXYBUTYNIN HYDROCHLORIDE [Suspect]
     Active Substance: OXYBUTYNIN CHLORIDE
     Indication: PSYCHIATRIC SYMPTOM
     Route: 048
  16. LEVOMEPROMAZINE [Suspect]
     Active Substance: LEVOMEPROMAZINE
     Indication: PRODUCT USED FOR UNKNOWN INDICATION
     Route: 048
  17. DIAZEPAM. [Suspect]
     Active Substance: DIAZEPAM
     Indication: PRODUCT USED FOR UNKNOWN INDICATION
     Route: 065
  18. DOLIPRANE [Suspect]
     Active Substance: ACETAMINOPHEN
     Route: 048
  19. SPASFON (FRANCE) [Suspect]
     Active Substance: PHLOROGLUCINOL\1,3,5-TRIMETHOXYBENZENE
     Indication: PSYCHIATRIC SYMPTOM
     Dosage: INTERMITTENTLY
     Route: 048
  20. NOZINAN [Suspect]
     Active Substance: LEVOMEPROMAZINE
     Indication: PSYCHIATRIC SYMPTOM
     Dosage: 4 %
     Route: 048
  21. FORLAX [Suspect]
     Active Substance: POLYETHYLENE GLYCOL 4000
     Route: 065

REACTIONS (11)
  - Necrosis ischaemic [Fatal]
  - Megacolon [Fatal]
  - Gastrointestinal obstruction [Fatal]
  - Megacolon [Fatal]
  - Intestinal obstruction [Fatal]
  - Intestinal pseudo-obstruction [Fatal]
  - Drug interaction [Fatal]
  - Toxicity to various agents [Unknown]
  - Constipation [Fatal]
  - Antipsychotic drug level increased [Unknown]
  - Haemoperitoneum [Unknown]

NARRATIVE: CASE EVENT DATE: 201308
